FAERS Safety Report 5428458-X (Version None)
Quarter: 2007Q3

REPORT INFORMATION
  Report Type: 
  Country: None (occurrence: None)
  Receive Date: 20070824
  Receipt Date: 20070814
  Transmission Date: 20080115
  Serious: Yes (Hospitalization)
  Sender: FDA-Public Use
  Company Number: JPI-P-001894

PATIENT
  Age: 59 Year
  Sex: Female
  Weight: 77.1115 kg

DRUGS (1)
  1. XYREM [Suspect]
     Indication: PAIN
     Dosage: 7.5 (3.75, 2 IN 1 D), ORAL
     Route: 048
     Dates: start: 20070501

REACTIONS (3)
  - CONVULSION [None]
  - HAEMOLYTIC URAEMIC SYNDROME [None]
  - THROMBOCYTOPENIC PURPURA [None]
